FAERS Safety Report 20905958 (Version 1)
Quarter: 2022Q2

REPORT INFORMATION
  Report Type: Spontaneous
  Country: US (occurrence: None)
  Receive Date: 20220602
  Receipt Date: 20220602
  Transmission Date: 20220721
  Serious: Yes (Hospitalization)
  Sender: FDA-Public Use
  Company Number: None

PATIENT
  Age: 83 Year
  Sex: Male
  Weight: 74 kg

DRUGS (1)
  1. BORTEZOMIB [Suspect]
     Active Substance: BORTEZOMIB
     Indication: Plasma cell myeloma
     Dosage: 3 MG QWEEK IV? ?
     Route: 042
     Dates: start: 20210719, end: 20211122

REACTIONS (3)
  - Small intestinal obstruction [None]
  - Enteritis [None]
  - Ischaemia [None]

NARRATIVE: CASE EVENT DATE: 20210823
